FAERS Safety Report 6706309-0 (Version None)
Quarter: 2010Q2

REPORT INFORMATION
  Report Type: 
  Country: None (occurrence: None)
  Receive Date: 20100430
  Receipt Date: 20100430
  Transmission Date: 20101027
  Serious: Yes (Other)
  Sender: FDA-Public Use
  Company Number: None

PATIENT
  Age: 34 Year
  Sex: Male
  Weight: 108.8633 kg

DRUGS (2)
  1. CLEAR AWAY SALICYLIC ACID 17% DR SCHOLL'S [Suspect]
     Indication: SKIN PAPILLOMA
     Dosage: DROPS 2 X PER DAY
     Dates: start: 20100215, end: 20100220
  2. CLEAR AWAY SALICYLIC ACID 17% DR SCHOLL'S [Suspect]
     Indication: SKIN PAPILLOMA
     Dosage: DROPS 2 X PER DAY
     Dates: start: 20100420, end: 20100423

REACTIONS (2)
  - ARTHRALGIA [None]
  - BACK PAIN [None]
